FAERS Safety Report 7817812-4 (Version None)
Quarter: 2011Q4

REPORT INFORMATION
  Report Type: 
  Country: None (occurrence: None)
  Receive Date: 20111017
  Receipt Date: 20110923
  Transmission Date: 20120403
  Serious: Yes (Other)
  Sender: FDA-Public Use
  Company Number: FR-PFIZER INC-2011243160

PATIENT
  Age: 42 Year
  Sex: Female
  Weight: 60 kg

DRUGS (2)
  1. TRAMADOL [Concomitant]
     Dosage: 50 MG, UNK
     Dates: end: 20110610
  2. CRIZOTINIB [Suspect]
     Indication: LUNG ADENOCARCINOMA
     Dosage: 250 MG, 2X/DAY
     Route: 048
     Dates: start: 20110601

REACTIONS (3)
  - CYTOLYTIC HEPATITIS [None]
  - NAUSEA [None]
  - NEUTROPENIA [None]
